FAERS Safety Report 17350568 (Version 2)
Quarter: 2020Q1

REPORT INFORMATION
  Report Type: Spontaneous
  Country: CA (occurrence: CA)
  Receive Date: 20200130
  Receipt Date: 20200131
  Transmission Date: 20200409
  Serious: Yes (Life-Threatening, Hospitalization, Other)
  Sender: FDA-Public Use
  Company Number: CA-MACLEODS PHARMACEUTICALS US LTD-MAC2020024937

PATIENT

DRUGS (2)
  1. OLANZAPINE 10MG TABLET [Suspect]
     Active Substance: OLANZAPINE
     Dosage: 700 MILLIGRAM, 70 TABLETS ALL AT ONCE
     Route: 048
  2. OLANZAPINE 10MG TABLET [Suspect]
     Active Substance: OLANZAPINE
     Indication: SCHIZOPHRENIA
     Dosage: 10 MILLIGRAM, QD
     Route: 048

REACTIONS (9)
  - Pneumonia aspiration [Unknown]
  - Coma [Unknown]
  - Seizure [Unknown]
  - Intentional overdose [Unknown]
  - Pulmonary embolism [Unknown]
  - Deep vein thrombosis [Unknown]
  - Coagulopathy [Unknown]
  - Hallucination, auditory [Unknown]
  - Therapeutic product effect incomplete [Unknown]
